FAERS Safety Report 12593320 (Version 1)
Quarter: 2016Q3

REPORT INFORMATION
  Report Type: Spontaneous
  Country: US (occurrence: US)
  Receive Date: 20160726
  Receipt Date: 20160726
  Transmission Date: 20161109
  Serious: No
  Sender: FDA-Public Use
  Company Number: US-ABBVIE-16P-163-1531889-00

PATIENT
  Age: 53 Year
  Sex: Female

DRUGS (2)
  1. ARMOUR THYROID [Suspect]
     Active Substance: THYROID, PORCINE
     Indication: PRODUCT USED FOR UNKNOWN INDICATION
     Route: 065
  2. SYNTHROID [Suspect]
     Active Substance: LEVOTHYROXINE SODIUM
     Indication: PRODUCT USED FOR UNKNOWN INDICATION
     Route: 048

REACTIONS (8)
  - Feeling abnormal [Unknown]
  - Weight loss poor [Unknown]
  - Skin disorder [Unknown]
  - Alopecia [Unknown]
  - Seborrhoea [Unknown]
  - Headache [Recovering/Resolving]
  - Asthenia [Recovering/Resolving]
  - Memory impairment [Unknown]
